FAERS Safety Report 5768133-5 (Version None)
Quarter: 2008Q2

REPORT INFORMATION
  Report Type: 
  Country: None (occurrence: None)
  Receive Date: 20080606
  Receipt Date: 20080528
  Transmission Date: 20081010
  Serious: Yes (Other)
  Sender: FDA-Public Use
  Company Number: 6043001

PATIENT
  Age: 62 Year
  Sex: Female

DRUGS (2)
  1. BISOPROLOL FUMARATE [Suspect]
     Indication: ARRHYTHMIA
     Dosage: (1.25 MG, 3 IN 1 D) ORAL
     Route: 048
     Dates: end: 20080501
  2. CONCOR (BISOPROLOL FUMARATE) [Concomitant]

REACTIONS (2)
  - HYPERSENSITIVITY [None]
  - RASH [None]
